FAERS Safety Report 21231621 (Version 1)
Quarter: 2022Q3

REPORT INFORMATION
  Report Type: Spontaneous
  Country: US (occurrence: US)
  Receive Date: 20220819
  Receipt Date: 20220819
  Transmission Date: 20221026
  Serious: No
  Sender: FDA-Public Use
  Company Number: US-BAUSCH-BL-2022-020110

PATIENT
  Age: 87 Year
  Sex: Male
  Weight: 74.910 kg

DRUGS (1)
  1. VYZULTA [Suspect]
     Active Substance: LATANOPROSTENE BUNOD
     Indication: Eye disorder
     Dosage: 1 DROP IN EACH EYE EVERY NIGHT FOR EYES
     Route: 047

REACTIONS (1)
  - Visual impairment [Unknown]

NARRATIVE: CASE EVENT DATE: 20220101
